FAERS Safety Report 26090379 (Version 3)
Quarter: 2025Q4

REPORT INFORMATION
  Report Type: Report from Study
  Country: US (occurrence: US)
  Receive Date: 20251126
  Receipt Date: 20251209
  Transmission Date: 20260117
  Serious: Yes (Other)
  Sender: ACADIA PHARMACEUTICALS
  Company Number: US-ACADIA PHARMACEUTICALS INC.-ACA-2025-TRF-012489

PATIENT
  Age: 9 Year
  Sex: Female
  Weight: 30.7 kg

DRUGS (14)
  1. DAYBUE [Suspect]
     Active Substance: TROFINETIDE
     Indication: Rett syndrome
     Dosage: 40 MILLILITER, BID
     Route: 048
     Dates: start: 202312
  2. VIMPAT [Concomitant]
     Active Substance: LACOSAMIDE
     Indication: Seizure
     Dosage: 14.5 MILLILITER, BID
     Route: 065
  3. BACLOFEN [Concomitant]
     Active Substance: BACLOFEN
     Indication: Muscle spasticity
     Dosage: (10 MG/ML) COMPOUNDED ORAL SUSPENSION
     Route: 048
  4. BACLOFEN [Concomitant]
     Active Substance: BACLOFEN
     Dosage: (10 MG/ML) COMPOUNDED ORAL SUSPENSION
     Route: 048
  5. BACLOFEN [Concomitant]
     Active Substance: BACLOFEN
     Dosage: (10 MG/ML) COMPOUNDED ORAL SUSPENSION
     Route: 048
  6. ONFI [Concomitant]
     Active Substance: CLOBAZAM
     Dosage: 4 MILLILITER, BID (2.5 MG/ML (10 MG TOTAL)
     Route: 048
  7. KLONOPIN [Concomitant]
     Active Substance: CLONAZEPAM
     Indication: Seizure cluster
     Dosage: DISSOLVE 1 TABLET BY MOUTH
     Route: 048
  8. ATARAX [Concomitant]
     Active Substance: HYDROXYZINE HYDROCHLORIDE
     Indication: Anxiety
     Dosage: 5 MILLILITER(10 MG TOTAL), BID
     Route: 048
  9. ZOLOFT [Concomitant]
     Active Substance: SERTRALINE HYDROCHLORIDE
     Indication: Social anxiety disorder
     Dosage: 0.7 MILLILITER(14 MG TOTAL), QD
  10. VALTOCO [Concomitant]
     Active Substance: DIAZEPAM
     Indication: Seizure
     Dosage: 0.1 MILLILITER, PRN
  11. SENOKOT [Concomitant]
     Active Substance: SENNOSIDES
     Dosage: 5 MILLILITER, BID, 8.8 MG/ML (BY MOUTH)
     Route: 048
  12. SENOKOT [Concomitant]
     Active Substance: SENNOSIDES
     Dosage: 7 MILLILITER, PRN 8.8 MG/ML (BY MOUTH)
     Route: 048
  13. SIMETHICONE (DIMETHICONE) [Concomitant]
     Active Substance: DIMETHICONE
     Dosage: 0.3 MILLILITER (20MG TOTAL), PRN (4 TIMES DAILY)
  14. TYLENOL [Concomitant]
     Active Substance: ACETAMINOPHEN

REACTIONS (3)
  - Seizure [Not Recovered/Not Resolved]
  - Tonic convulsion [Unknown]
  - Seizure cluster [Unknown]

NARRATIVE: CASE EVENT DATE: 20250501
